FAERS Safety Report 4854979-4 (Version None)
Quarter: 2005Q4

REPORT INFORMATION
  Report Type: 
  Country: None (occurrence: None)
  Receive Date: 20051214
  Receipt Date: 20051201
  Transmission Date: 20060501
  Serious: Yes (Other)
  Sender: FDA-Public Use
  Company Number: 2005RR-01280

PATIENT
  Age: 10 Year
  Sex: Male

DRUGS (1)
  1. PARACETAMOL TABLETS BP 500MG (PARACETAMOL) [Suspect]
     Dosage: 500 MG, ORAL
     Route: 048
     Dates: start: 20051113, end: 20051113

REACTIONS (2)
  - TACHYCARDIA [None]
  - URTICARIA [None]
